FAERS Safety Report 13694016 (Version 1)
Quarter: 2017Q2

REPORT INFORMATION
  Report Type: Spontaneous
  Country: US (occurrence: US)
  Receive Date: 20170626
  Receipt Date: 20170626
  Transmission Date: 20170830
  Serious: Yes (Disabling)
  Sender: FDA-Public Use
  Company Number: None

PATIENT
  Age: 48 Year
  Sex: Female
  Weight: 103.5 kg

DRUGS (10)
  1. JANUMET [Concomitant]
     Active Substance: METFORMIN HYDROCHLORIDE\SITAGLIPTIN PHOSPHATE
  2. MULTIVITAMIN [Concomitant]
     Active Substance: VITAMINS
  3. INSULIN [Concomitant]
     Active Substance: INSULIN NOS
  4. ATOROVASTATIN [Concomitant]
  5. FLONASE [Concomitant]
     Active Substance: FLUTICASONE PROPIONATE
  6. EFFEXOR XR [Concomitant]
     Active Substance: VENLAFAXINE HYDROCHLORIDE
  7. PRILOSEC [Concomitant]
     Active Substance: OMEPRAZOLE MAGNESIUM
  8. XELODA [Suspect]
     Active Substance: CAPECITABINE
     Indication: BREAST CANCER METASTATIC
     Dosage: ?          QUANTITY:3 TABLET(S);?
     Route: 048
     Dates: start: 20160801, end: 20170115
  9. ALEVE [Concomitant]
     Active Substance: NAPROXEN SODIUM
  10. CLARITIN [Concomitant]
     Active Substance: LORATADINE

REACTIONS (2)
  - Rheumatoid arthritis [None]
  - Movement disorder [None]

NARRATIVE: CASE EVENT DATE: 20161231
